FAERS Safety Report 5822827-1 (Version None)
Quarter: 2008Q3

REPORT INFORMATION
  Report Type: 
  Country: None (occurrence: None)
  Receive Date: 20080725
  Receipt Date: 20080717
  Transmission Date: 20090109
  Serious: Yes (Hospitalization)
  Sender: FDA-Public Use
  Company Number: JP-ABBOTT-08P-087-0462406-00

PATIENT
  Sex: Male
  Weight: 59 kg

DRUGS (12)
  1. HUMIRA [Suspect]
     Indication: CROHN'S DISEASE
     Route: 058
     Dates: start: 20071218
  2. MESALAMINE [Concomitant]
     Indication: CROHN'S DISEASE
     Route: 048
     Dates: start: 20070625, end: 20080703
  3. MESALAMINE [Concomitant]
     Route: 048
     Dates: start: 20080713
  4. ELENTAL [Concomitant]
     Indication: CROHN'S DISEASE
     Route: 048
     Dates: start: 20070625, end: 20080703
  5. ELENTAL [Concomitant]
     Route: 048
     Dates: start: 20080708, end: 20080709
  6. ELENTAL [Concomitant]
     Route: 048
     Dates: start: 20080710
  7. POLYCARBOPHIL CALCIUM [Concomitant]
     Indication: DIARRHOEA
     Route: 048
     Dates: start: 20070625, end: 20080703
  8. POLYCARBOPHIL CALCIUM [Concomitant]
     Route: 048
     Dates: start: 20080713
  9. PHELLOBERIN [Concomitant]
     Indication: DIARRHOEA
     Route: 048
     Dates: start: 20070625, end: 20080703
  10. PHELLOBERIN [Concomitant]
     Route: 048
     Dates: start: 20080713
  11. FERROUS CITRATE [Concomitant]
     Indication: ANAEMIA
     Route: 048
     Dates: start: 20070625, end: 20080703
  12. FERROUS CITRATE [Concomitant]
     Route: 048
     Dates: start: 20080713

REACTIONS (1)
  - INTESTINAL OBSTRUCTION [None]
